FAERS Safety Report 6239876-4 (Version None)
Quarter: 2009Q2

REPORT INFORMATION
  Report Type: 
  Country: None (occurrence: None)
  Receive Date: 20090618
  Receipt Date: 20090618
  Transmission Date: 20091009
  Serious: No
  Sender: FDA-Public Use
  Company Number: None

PATIENT
  Age: 55 Year
  Sex: Female
  Weight: 70.3075 kg

DRUGS (2)
  1. ZICAM NASAL GEL [Suspect]
     Indication: NASOPHARYNGITIS
     Dosage: ONE SPRAY 2-3 SEPARATE TIMES NASAL
     Route: 045
     Dates: start: 20090320, end: 20090322
  2. ZICAM NASAL GEL [Suspect]
     Indication: UPPER RESPIRATORY TRACT INFECTION
     Dosage: ONE SPRAY 2-3 SEPARATE TIMES NASAL
     Route: 045
     Dates: start: 20090320, end: 20090322

REACTIONS (5)
  - AGEUSIA [None]
  - ANOSMIA [None]
  - ANXIETY [None]
  - BRONCHITIS [None]
  - IMPAIRED WORK ABILITY [None]
